FAERS Safety Report 4678833-6 (Version None)
Quarter: 2005Q2

REPORT INFORMATION
  Report Type: 
  Country: None (occurrence: None)
  Receive Date: 20050531
  Receipt Date: 20050520
  Transmission Date: 20051028
  Serious: Yes (Hospitalization)
  Sender: FDA-Public Use
  Company Number: A0545731A

PATIENT
  Age: 67 Year
  Sex: Female

DRUGS (24)
  1. ADVAIR DISKUS 100/50 [Suspect]
     Indication: ASTHMA
     Dosage: 1 PUFF(S) / PER DAY / INHALED
     Route: 055
     Dates: start: 20030901
  2. OESTRADIOL [Concomitant]
  3. PIROXICAM [Concomitant]
  4. GABAPENTIN [Concomitant]
  5. LANSOPRAZOLE [Concomitant]
  6. AMLODIPINE [Concomitant]
  7. CETIRIZINE HYDROCHLORIDE [Concomitant]
  8. CLONAZEPAM [Concomitant]
  9. TRIAMCINOLONE ACETONIDE [Concomitant]
  10. LANSOPRAZOLE [Concomitant]
  11. ATORVASTATIN CALCIUM [Concomitant]
  12. MULTI-VITAMIN [Concomitant]
  13. GUAR GUM [Concomitant]
  14. CALCIUM WITH VITAMIN D [Concomitant]
  15. CALCIUM CARBONATE [Concomitant]
  16. ALMOTRIPTAN MALATE [Concomitant]
  17. NARATRIPTAN HYDROCHLORIDE [Concomitant]
  18. SUMATRIPTAN SUCCINATE [Concomitant]
  19. AZELASTINE HCL [Concomitant]
  20. SALBUTAMOL SULPHATE [Concomitant]
  21. ZOLPIDEM TARTRATE [Concomitant]
  22. POLYETHYLENE GLYCOL [Concomitant]
  23. OLMESARTAN MEDOXOMIL [Concomitant]
  24. FIORINAL W/CODEINE [Concomitant]

REACTIONS (4)
  - BLOOD PRESSURE DECREASED [None]
  - DEHYDRATION [None]
  - DYSPNOEA [None]
  - PHARMACEUTICAL PRODUCT COMPLAINT [None]
